FAERS Safety Report 8761246 (Version 2)
Quarter: 2013Q1

REPORT INFORMATION
  Report Type: Spontaneous
  Country: FR (occurrence: FR)
  Receive Date: 20120830
  Receipt Date: 20130117
  Transmission Date: 20140127
  Serious: Yes (Hospitalization)
  Sender: FDA-Public Use
  Company Number: FR-GLAXOSMITHKLINE-B0823856A

PATIENT
  Age: 81 None
  Sex: Male

DRUGS (12)
  1. AVODART [Suspect]
     Indication: BENIGN PROSTATIC HYPERPLASIA
     Route: 048
     Dates: start: 20120328, end: 20120420
  2. SILODOSIN [Suspect]
     Indication: BENIGN PROSTATIC HYPERPLASIA
     Route: 048
     Dates: start: 20120328, end: 20120420
  3. VOLTARENE [Suspect]
     Indication: BACK PAIN
     Route: 048
     Dates: start: 2011, end: 20120426
  4. VOLTAREN EMULGEL [Suspect]
     Indication: BACK PAIN
     Route: 061
     Dates: start: 2011, end: 20120426
  5. COZAAR [Concomitant]
     Indication: PRODUCT USED FOR UNKNOWN INDICATION
     Dosage: 50MG PER DAY
     Route: 065
  6. LOXEN [Concomitant]
     Indication: PRODUCT USED FOR UNKNOWN INDICATION
     Dosage: 50MG TWICE PER DAY
     Route: 065
  7. METFORMINE [Concomitant]
     Indication: PRODUCT USED FOR UNKNOWN INDICATION
     Dosage: 850MG TWICE PER DAY
     Route: 065
  8. ISOSORBID MONONITRATE [Concomitant]
     Indication: PRODUCT USED FOR UNKNOWN INDICATION
     Dosage: 2UNIT PER DAY
     Route: 065
  9. KARDEGIC [Concomitant]
     Indication: PRODUCT USED FOR UNKNOWN INDICATION
     Dosage: 75MG PER DAY
     Route: 065
  10. EFFERALGAN [Concomitant]
     Indication: PAIN
     Route: 065
  11. LOPERAMIDE [Concomitant]
     Indication: PRODUCT USED FOR UNKNOWN INDICATION
     Route: 065
  12. ALFUZOSINE [Concomitant]
     Indication: PRODUCT USED FOR UNKNOWN INDICATION
     Route: 065

REACTIONS (9)
  - Vascular purpura [Recovered/Resolved]
  - Prurigo [Recovered/Resolved]
  - Petechiae [Recovered/Resolved]
  - Burning sensation [Recovered/Resolved]
  - Leukocytoclastic vasculitis [Recovered/Resolved]
  - Anaemia macrocytic [Unknown]
  - Vitamin B12 deficiency [Unknown]
  - Hypergammaglobulinaemia [Unknown]
  - Henoch-Schonlein purpura [Unknown]
